FAERS Safety Report 11200135 (Version 3)
Quarter: 2015Q3

REPORT INFORMATION
  Report Type: Spontaneous
  Country: US (occurrence: US)
  Receive Date: 20150618
  Receipt Date: 20150729
  Transmission Date: 20151125
  Serious: Yes (Hospitalization)
  Sender: FDA-Public Use
  Company Number: US-PFIZER INC-2015202861

PATIENT
  Age: 80 Year
  Sex: Female

DRUGS (10)
  1. ELIQUIS [Concomitant]
     Active Substance: APIXABAN
     Dosage: 2.5 MG, 2X/DAY
  2. IRON [Concomitant]
     Active Substance: IRON
     Dosage: 325 MG, WEEKLY (1)
  3. METOPROLOL TARTRATE. [Concomitant]
     Active Substance: METOPROLOL TARTRATE
     Dosage: 25 MG, UNK (1-2 TIMES A DAY)
  4. ATENOLOL. [Concomitant]
     Active Substance: ATENOLOL
     Dosage: 25 MG, UNK
  5. BUMETANIDE. [Concomitant]
     Active Substance: BUMETANIDE
     Dosage: 1 MG, 2X/DAY
  6. HYDROCODONE/ACETAMINOPHEN [Concomitant]
     Active Substance: ACETAMINOPHEN\HYDROCODONE
     Dosage: 1-AS NEEDED
  7. MIRAPEX [Concomitant]
     Active Substance: PRAMIPEXOLE DIHYDROCHLORIDE
     Dosage: 1.5 MG, 1X/DAY
  8. GINGER ROOT [Concomitant]
     Dosage: UNK, 1X/DAY
  9. LYRICA [Suspect]
     Active Substance: PREGABALIN
     Indication: BURNING SENSATION
     Dosage: 50 MG, UNK
     Dates: start: 2015
  10. NIACIN. [Concomitant]
     Active Substance: NIACIN
     Dosage: 500 MG 2 AT BEDTIME

REACTIONS (4)
  - Dizziness [Unknown]
  - Pain [Unknown]
  - Pericardial effusion [Unknown]
  - Feeling abnormal [Recovering/Resolving]
